FAERS Safety Report 13653577 (Version 1)
Quarter: 2017Q2

REPORT INFORMATION
  Report Type: Spontaneous
  Country: US (occurrence: US)
  Receive Date: 20170614
  Receipt Date: 20170614
  Transmission Date: 20170830
  Serious: No
  Sender: FDA-Public Use
  Company Number: US-ROCHE-1342990

PATIENT
  Sex: Female

DRUGS (5)
  1. XELODA [Suspect]
     Active Substance: CAPECITABINE
     Indication: ANAL CANCER
     Dosage: BID X 14 DAYS
     Route: 048
     Dates: start: 20140111
  2. XELODA [Suspect]
     Active Substance: CAPECITABINE
     Dosage: QPM
     Route: 048
     Dates: start: 20140420
  3. XELODA [Suspect]
     Active Substance: CAPECITABINE
     Indication: RECTAL CANCER
     Dosage: QAM
     Route: 048
     Dates: start: 20140111
  4. XELODA [Suspect]
     Active Substance: CAPECITABINE
     Indication: RECTOSIGMOID CANCER
     Dosage: QPM
     Route: 048
     Dates: start: 20140111
  5. XELODA [Suspect]
     Active Substance: CAPECITABINE
     Dosage: QAM
     Route: 048
     Dates: start: 20140420

REACTIONS (2)
  - Palmar-plantar erythrodysaesthesia syndrome [Unknown]
  - Back pain [Unknown]
